FAERS Safety Report 7587172-5 (Version None)
Quarter: 2011Q3

REPORT INFORMATION
  Report Type: 
  Country: None (occurrence: None)
  Receive Date: 20110701
  Receipt Date: 20110620
  Transmission Date: 20111222
  Serious: Yes (Hospitalization)
  Sender: FDA-Public Use
  Company Number: JP-WATSON-2011-09191

PATIENT
  Age: 85 Year
  Sex: Male

DRUGS (6)
  1. WARKMIN [Concomitant]
     Indication: PRODUCT USED FOR UNKNOWN INDICATION
     Dosage: UNK
     Route: 048
  2. RABEPRAZOLE SODIUM [Concomitant]
     Indication: PRODUCT USED FOR UNKNOWN INDICATION
     Dosage: UNK
     Route: 048
  3. TECIPUL [Concomitant]
     Indication: PRODUCT USED FOR UNKNOWN INDICATION
     Dosage: UNK
     Route: 048
  4. RAPAFLO [Suspect]
     Indication: DYSURIA
     Dosage: 8 MG, DAILY
     Route: 048
     Dates: start: 20110519, end: 20110602
  5. FERROMIA                           /00023520/ [Concomitant]
     Indication: PRODUCT USED FOR UNKNOWN INDICATION
     Dosage: UNK
     Route: 048
  6. TOUCHRON [Concomitant]
     Indication: PRODUCT USED FOR UNKNOWN INDICATION
     Dosage: 10CM X 14CM/ DAY
     Route: 062

REACTIONS (1)
  - HEPATIC FUNCTION ABNORMAL [None]
